FAERS Safety Report 5469567-9 (Version None)
Quarter: 2007Q3

REPORT INFORMATION
  Report Type: 
  Country: None (occurrence: None)
  Receive Date: 20070925
  Receipt Date: 20070925
  Transmission Date: 20080115
  Serious: Yes (Death)
  Sender: FDA-Public Use
  Company Number: None

PATIENT
  Age: 73 Year
  Sex: Male

DRUGS (2)
  1. ACTIVASE [Suspect]
     Indication: ANGIOPLASTY
     Dosage: 100 MG  ONCE  IV
     Route: 042
     Dates: start: 20070910, end: 20070910
  2. ACTIVASE [Suspect]
     Indication: PROCEDURAL COMPLICATION
     Dosage: 100 MG  ONCE  IV
     Route: 042
     Dates: start: 20070910, end: 20070910

REACTIONS (2)
  - HAEMORRHAGIC STROKE [None]
  - POST PROCEDURAL COMPLICATION [None]
